FAERS Safety Report 21638845 (Version 2)
Quarter: 2022Q4

REPORT INFORMATION
  Report Type: Report from Study
  Country: CA (occurrence: CA)
  Receive Date: 20221124
  Receipt Date: 20221213
  Transmission Date: 20230112
  Serious: Yes (Other)
  Sender: FDA-Public Use
  Company Number: CA-CELLTRION INC.-2022CA019672

PATIENT

DRUGS (2)
  1. TRUXIMA [Suspect]
     Active Substance: RITUXIMAB-ABBS
     Indication: Rheumatoid arthritis
     Dosage: 1000 MG, EVERY 6 MONTHS - BUT SHE ADVANCED IT TO 5 MONTHS BECAUSE OF THE FLARE UP.
     Route: 042
     Dates: start: 20220620
  2. METOPROLOL [Concomitant]
     Active Substance: METOPROLOL

REACTIONS (3)
  - Rheumatoid arthritis [Recovered/Resolved]
  - Psoriasis [Recovering/Resolving]
  - Off label use [Unknown]
